FAERS Safety Report 7068017-9 (Version None)
Quarter: 2010Q4

REPORT INFORMATION
  Report Type: 
  Country: None (occurrence: None)
  Receive Date: 20101027
  Receipt Date: 20101027
  Transmission Date: 20110411
  Serious: Yes (Other)
  Sender: FDA-Public Use
  Company Number: None

PATIENT
  Age: 52 Year
  Sex: Male
  Weight: 92.9874 kg

DRUGS (4)
  1. OXYCONTIN [Suspect]
     Indication: POST LAMINECTOMY SYNDROME
     Dosage: 2-80MG TABS TWICE PER DAY PO
     Route: 048
     Dates: start: 19970101, end: 20101022
  2. ANALGESICS [Concomitant]
  3. MUSCLE RELAXERS [Concomitant]
  4. TRANQUILIZERS [Suspect]

REACTIONS (2)
  - DRUG INEFFECTIVE [None]
  - PRODUCT FORMULATION ISSUE [None]
